FAERS Safety Report 20088907 (Version 1)
Quarter: 2021Q4

REPORT INFORMATION
  Report Type: Spontaneous
  Country: US (occurrence: US)
  Receive Date: 20211119
  Receipt Date: 20211119
  Transmission Date: 20220303
  Serious: No
  Sender: FDA-Public Use
  Company Number: US-JNJFOC-20211119737

PATIENT
  Age: 64 Year
  Sex: Female

DRUGS (2)
  1. IMODIUM [Suspect]
     Active Substance: LOPERAMIDE HYDROCHLORIDE
     Indication: Diarrhoea
     Route: 065
  2. XALKORI [Concomitant]
     Active Substance: CRIZOTINIB
     Indication: Product used for unknown indication
     Route: 065

REACTIONS (2)
  - Muscle spasms [Unknown]
  - Constipation [Unknown]
